FAERS Safety Report 18947858 (Version 2)
Quarter: 2021Q4

REPORT INFORMATION
  Report Type: Spontaneous
  Country: CA (occurrence: CA)
  Receive Date: 20210226
  Receipt Date: 20211020
  Transmission Date: 20220303
  Serious: Yes (Life-Threatening, Hospitalization, Other)
  Sender: FDA-Public Use
  Company Number: CA-GLAXOSMITHKLINE-CA2021GSK053545

PATIENT
  Age: 64 Year
  Sex: Male
  Weight: 70 kg

DRUGS (15)
  1. BUPROPION [Suspect]
     Active Substance: BUPROPION
     Indication: Product used for unknown indication
     Dosage: UNK
     Route: 048
  2. LORAZEPAM [Suspect]
     Active Substance: LORAZEPAM
     Indication: Product used for unknown indication
     Dosage: UNK
     Route: 048
  3. LEVOTHYROXINE [Suspect]
     Active Substance: LEVOTHYROXINE
     Indication: Product used for unknown indication
     Dosage: UNK
     Route: 048
  4. CITALOPRAM HYDROBROMIDE [Suspect]
     Active Substance: CITALOPRAM HYDROBROMIDE
     Indication: Product used for unknown indication
     Dosage: UNK
     Route: 048
  5. FESOTERODINE FUMARATE [Suspect]
     Active Substance: FESOTERODINE FUMARATE
     Indication: Product used for unknown indication
     Dosage: UNK
     Route: 048
  6. LOPERAMIDE [Suspect]
     Active Substance: LOPERAMIDE
     Indication: Product used for unknown indication
     Dosage: UNK
     Route: 048
  7. NINTEDANIB ESYLATE [Suspect]
     Active Substance: NINTEDANIB ESYLATE
     Indication: Pulmonary fibrosis
     Dosage: 100 MG, BID
     Route: 048
  8. NINTEDANIB ESYLATE [Suspect]
     Active Substance: NINTEDANIB ESYLATE
     Dosage: 150 MG, 1D
     Route: 048
  9. NINTEDANIB ESYLATE [Suspect]
     Active Substance: NINTEDANIB ESYLATE
     Dosage: 150 MG, BID
     Route: 048
  10. OXYCODONE HYDROCHLORIDE [Suspect]
     Active Substance: OXYCODONE HYDROCHLORIDE
     Indication: Product used for unknown indication
     Dosage: UNK
     Route: 048
  11. PANTOPRAZOLE MAGNESIUM [Suspect]
     Active Substance: PANTOPRAZOLE MAGNESIUM
     Indication: Product used for unknown indication
     Dosage: UNK
     Route: 048
  12. PANTOPRAZOLE SODIUM [Suspect]
     Active Substance: PANTOPRAZOLE SODIUM
     Indication: Product used for unknown indication
     Dosage: UNK
     Route: 048
  13. PROPRANOLOL HYDROCHLORIDE [Suspect]
     Active Substance: PROPRANOLOL HYDROCHLORIDE
     Indication: Product used for unknown indication
     Dosage: UNK
     Route: 048
  14. ROSUVASTATIN CALCIUM [Suspect]
     Active Substance: ROSUVASTATIN CALCIUM
     Indication: Product used for unknown indication
     Dosage: UNK
     Route: 048
  15. DOMPERIDONE [Concomitant]
     Active Substance: DOMPERIDONE
     Indication: Product used for unknown indication
     Dosage: UNK

REACTIONS (8)
  - Cerebrovascular accident [Unknown]
  - Cerebral infarction [Unknown]
  - Transient ischaemic attack [Unknown]
  - Pulseless electrical activity [Unknown]
  - Aphasia [Unknown]
  - Amnesia [Unknown]
  - Loss of consciousness [Unknown]
  - Overdose [Unknown]
